FAERS Safety Report 6214975-1 (Version None)
Quarter: 2009Q2

REPORT INFORMATION
  Report Type: 
  Country: None (occurrence: None)
  Receive Date: 20090604
  Receipt Date: 20080430
  Transmission Date: 20091009
  Serious: No
  Sender: FDA-Public Use
  Company Number: US-ASTRAZENECA-2001UW10984

PATIENT
  Age: 61 Year
  Sex: Female
  Weight: 63.6 kg

DRUGS (4)
  1. PRILOSEC [Suspect]
     Indication: GASTROOESOPHAGEAL REFLUX DISEASE
     Route: 048
     Dates: start: 19980406, end: 20080421
  2. PRILOSEC [Suspect]
     Indication: HIATUS HERNIA
     Route: 048
     Dates: start: 19980406, end: 20080421
  3. PRILOSEC [Suspect]
     Indication: OESOPHAGITIS
     Route: 048
     Dates: start: 19980406, end: 20080421
  4. ERYTHROMYCIN [Concomitant]
     Dates: start: 20080418, end: 20080421

REACTIONS (5)
  - ABDOMINAL PAIN UPPER [None]
  - DRUG INEFFECTIVE [None]
  - DYSPHONIA [None]
  - ILL-DEFINED DISORDER [None]
  - URTICARIA [None]
